FAERS Safety Report 6924349-3 (Version None)
Quarter: 2010Q3

REPORT INFORMATION
  Report Type: 
  Country: None (occurrence: None)
  Receive Date: 20100811
  Receipt Date: 20100811
  Transmission Date: 20110219
  Serious: Yes (Other)
  Sender: FDA-Public Use
  Company Number: None

PATIENT
  Sex: Female

DRUGS (2)
  1. SERTRALINE HYDROCHLORIDE [Suspect]
     Indication: DEPRESSION
     Dosage: 50MG 1/2 TAB X 4 DAYS PO THEN 1 TAB THEREAFTER
     Route: 048
     Dates: start: 20090130, end: 20090209
  2. SPRINTEC [Concomitant]

REACTIONS (5)
  - ERYTHEMA [None]
  - PAIN [None]
  - PRURITUS [None]
  - RASH [None]
  - RASH PAPULAR [None]
